FAERS Safety Report 23250522 (Version 2)
Quarter: 2023Q4

REPORT INFORMATION
  Report Type: Spontaneous
  Country: BG (occurrence: BG)
  Receive Date: 20231201
  Receipt Date: 20231201
  Transmission Date: 20240109
  Serious: Yes (Other)
  Sender: FDA-Public Use
  Company Number: BG-002147023-NVSC2023BG251582

PATIENT
  Age: 71 Year
  Sex: Male

DRUGS (2)
  1. VALSARTAN [Suspect]
     Active Substance: VALSARTAN
     Indication: Hypertension
     Dosage: 160 MG ONCE IN THE MORNING
     Route: 065
     Dates: start: 2015, end: 2018
  2. VALSARTAN AND HYDROCHLOROTHIAZIDE [Suspect]
     Active Substance: HYDROCHLOROTHIAZIDE\VALSARTAN
     Indication: Hypertension
     Dosage: 160MG/12.5MG ONCE IN THE MORNING
     Route: 065
     Dates: start: 2018, end: 202208

REACTIONS (1)
  - Skin cancer [Unknown]
